FAERS Safety Report 4582552-4 (Version None)
Quarter: 2005Q1

REPORT INFORMATION
  Report Type: 
  Country: None (occurrence: None)
  Receive Date: 20050215
  Receipt Date: 20050203
  Transmission Date: 20050727
  Serious: Yes (Death, Hospitalization)
  Sender: FDA-Public Use
  Company Number: JP-JNJFOC-20050200731

PATIENT
  Age: 51 Year
  Sex: Male

DRUGS (8)
  1. OFLOXACIN [Suspect]
     Route: 049
     Dates: start: 20041207
  2. LASILIX [Suspect]
     Indication: DRUG USE FOR UNKNOWN INDICATION
     Route: 049
  3. OROKEN [Suspect]
     Indication: DRUG USE FOR UNKNOWN INDICATION
     Route: 049
     Dates: start: 20041207
  4. SOLU-MEDROL [Concomitant]
  5. PREVISCAN [Concomitant]
     Route: 049
  6. MODAMIDE [Concomitant]
  7. TARDYFERON [Concomitant]
     Route: 049
  8. MEDROL [Concomitant]
     Route: 049

REACTIONS (7)
  - OVERDOSE [None]
  - PSEUDOMONAS INFECTION [None]
  - RENAL VEIN THROMBOSIS [None]
  - THROMBOCYTOPENIA [None]
  - THROMBOSIS [None]
  - URINARY TRACT INFECTION ENTEROCOCCAL [None]
  - VENA CAVA THROMBOSIS [None]
